FAERS Safety Report 8334564-2 (Version None)
Quarter: 2012Q2

REPORT INFORMATION
  Report Type: 
  Country: None (occurrence: None)
  Receive Date: 20120503
  Receipt Date: 20120420
  Transmission Date: 20120825
  Serious: Yes (Death, Hospitalization)
  Sender: FDA-Public Use
  Company Number: DE-INCYTE CORPORATION-2012IN000692

PATIENT
  Sex: Male
  Weight: 82 kg

DRUGS (1)
  1. INC424 [Suspect]
     Indication: MYELOFIBROSIS
     Dosage: 30 MG, BID
     Route: 048
     Dates: start: 20111207, end: 20120419

REACTIONS (2)
  - OESOPHAGEAL VARICES HAEMORRHAGE [None]
  - OESOPHAGEAL RUPTURE [None]
